FAERS Safety Report 7149992-0 (Version None)
Quarter: 2010Q4

REPORT INFORMATION
  Report Type: 
  Country: None (occurrence: None)
  Receive Date: 20101210
  Receipt Date: 20101201
  Transmission Date: 20110411
  Serious: Yes (Hospitalization, Other)
  Sender: FDA-Public Use
  Company Number: PE-SHIRE-SPV1-2010-02030

PATIENT
  Age: 10 Year
  Sex: Male

DRUGS (3)
  1. IDURSULFASE [Suspect]
     Indication: MUCOPOLYSACCHARIDOSIS II
     Dosage: 0.5 MG/KG, 1X/WEEK
     Route: 041
  2. RISPERIDONE [Concomitant]
     Dosage: UNK
     Route: 048
  3. FLIXOTIDE NEBUL [Suspect]
     Indication: ASTHMA
     Dosage: 0.25 MG, 2X/DAY:BID

REACTIONS (6)
  - CONVULSION [None]
  - DYSPHAGIA [None]
  - FALL [None]
  - INTRACRANIAL HYPOTENSION [None]
  - LOSS OF CONSCIOUSNESS [None]
  - SKULL FRACTURE [None]
